FAERS Safety Report 7334943-6 (Version None)
Quarter: 2011Q1

REPORT INFORMATION
  Report Type: 
  Country: None (occurrence: None)
  Receive Date: 20110302
  Receipt Date: 20110302
  Transmission Date: 20110831
  Serious: Yes (Other)
  Sender: FDA-Public Use
  Company Number: None

PATIENT
  Age: 2 Year
  Sex: Female
  Weight: 12.7007 kg

DRUGS (1)
  1. LANSOPRAZOLE 15MG 1 QD PO [Suspect]
     Indication: GASTROOESOPHAGEAL REFLUX DISEASE
     Dosage: 15MG 1QD PO
     Route: 048
     Dates: start: 20080101, end: 20090101

REACTIONS (1)
  - DRUG HYPERSENSITIVITY [None]
